FAERS Safety Report 8963882 (Version 1)
Quarter: 2012Q4

REPORT INFORMATION
  Report Type: 
  Country: PL (occurrence: PL)
  Receive Date: 20121214
  Receipt Date: 20121214
  Transmission Date: 20130627
  Serious: Yes (Life-Threatening)
  Sender: FDA-Public Use
  Company Number: PL-PFIZER INC-2012315012

PATIENT
  Age: 81 Year
  Sex: Male
  Weight: 81 kg

DRUGS (2)
  1. CISPLATIN [Suspect]
     Dosage: 55.29 mg, UNK
     Route: 042
     Dates: start: 20121107, end: 20121111
  2. VINORELBINE [Suspect]
     Dosage: 55.29 mg, UNK
     Route: 042
     Dates: start: 20121109, end: 20121116

REACTIONS (1)
  - Leukopenia [Recovering/Resolving]
